FAERS Safety Report 6141690-5 (Version None)
Quarter: 2009Q1

REPORT INFORMATION
  Report Type: 
  Country: None (occurrence: None)
  Receive Date: 20090331
  Receipt Date: 20090331
  Transmission Date: 20090719
  Serious: Yes (Life-Threatening, Other)
  Sender: FDA-Public Use
  Company Number: None

PATIENT
  Age: 49 Year
  Sex: Female
  Weight: 67.1324 kg

DRUGS (3)
  1. AMBIEN CR [Suspect]
     Indication: INSOMNIA
     Dosage: BEDTIME PO THREE- SIX MONTHS
     Route: 048
  2. PROZAC [Concomitant]
  3. EFFEXOR [Concomitant]

REACTIONS (1)
  - FEELING ABNORMAL [None]
